FAERS Safety Report 9464176 (Version 1)
Quarter: 2013Q3

REPORT INFORMATION
  Report Type: Spontaneous
  Country: US (occurrence: US)
  Receive Date: 20130819
  Receipt Date: 20130819
  Transmission Date: 20140515
  Serious: Yes (Other)
  Sender: FDA-Public Use
  Company Number: US-IAC JAPAN XML-USA-2013-0105359

PATIENT
  Sex: Male

DRUGS (1)
  1. BUTRANS [Suspect]
     Indication: PRODUCT USED FOR UNKNOWN INDICATION
     Dosage: 10 MCG/HR, WEEKLY
     Route: 062

REACTIONS (3)
  - Knee arthroplasty [Unknown]
  - Pain [Unknown]
  - Drug ineffective [Unknown]
